FAERS Safety Report 7439841-5 (Version None)
Quarter: 2011Q2

REPORT INFORMATION
  Report Type: 
  Country: None (occurrence: None)
  Receive Date: 20110427
  Receipt Date: 20100505
  Transmission Date: 20111010
  Serious: No
  Sender: FDA-Public Use
  Company Number: US-MYLANLABS-2010S1007955

PATIENT
  Age: 54 Year
  Sex: Female

DRUGS (7)
  1. OMEGA 3 /01334101/ [Concomitant]
     Indication: VITAMIN SUPPLEMENTATION
  2. MINOXIDIL [Suspect]
     Route: 061
     Dates: start: 20100401
  3. CALCIUM [Concomitant]
     Indication: VITAMIN SUPPLEMENTATION
     Route: 048
  4. MINOXIDIL [Suspect]
     Route: 061
     Dates: start: 20100401
  5. DILTIAZEM HCL [Suspect]
     Indication: ATRIAL FIBRILLATION
     Route: 048
     Dates: start: 20100116
  6. MINOXIDIL [Suspect]
     Indication: ALOPECIA
     Route: 061
     Dates: start: 20080101, end: 20100401
  7. VITAMIN D [Concomitant]
     Indication: VITAMIN D DEFICIENCY
     Route: 048
     Dates: start: 20100401

REACTIONS (1)
  - ALOPECIA [None]
